FAERS Safety Report 10514175 (Version 1)
Quarter: 2014Q4

REPORT INFORMATION
  Report Type: Spontaneous
  Country: GB (occurrence: GB)
  Receive Date: 20141013
  Receipt Date: 20141013
  Transmission Date: 20150528
  Serious: Yes (Other)
  Sender: FDA-Public Use
  Company Number: GB-ASPEN PHARMA TRADING LIMITED US-AG-2014-006246

PATIENT
  Age: 38 Year
  Sex: Female

DRUGS (2)
  1. LANVIS [Suspect]
     Active Substance: THIOGUANINE ANHYDROUS
     Indication: CROHN^S DISEASE
     Dosage: INITIATED AT ABOUT 0.6MG/KG DAILY. MAINTENANCE DAILY DOSES WERE SPLIT USING 20 MG DOSES EITHER AS ON
     Route: 048
  2. LANVIS [Suspect]
     Active Substance: THIOGUANINE ANHYDROUS
     Route: 048

REACTIONS (2)
  - Biopsy liver abnormal [Unknown]
  - Off label use [Unknown]
